FAERS Safety Report 5746315-6 (Version None)
Quarter: 2008Q2

REPORT INFORMATION
  Report Type: 
  Country: None (occurrence: None)
  Receive Date: 20080520
  Receipt Date: 20080506
  Transmission Date: 20081010
  Serious: Yes (Life-Threatening, Hospitalization, Disabling)
  Sender: FDA-Public Use
  Company Number: 2008-01565

PATIENT
  Age: 58 Year
  Sex: Male
  Weight: 90 kg

DRUGS (11)
  1. VELCADE [Suspect]
     Indication: MULTIPLE MYELOMA
     Dosage: 2.8 MG, INTRAVENOUS
     Route: 042
     Dates: start: 20080228, end: 20080425
  2. DOXORUBICIN HCL [Suspect]
     Indication: MULTIPLE MYELOMA
     Dosage: 19 MG, INTRAVENOUS
     Route: 042
     Dates: start: 20080225, end: 20080423
  3. DEXAMETHASONE TAB [Suspect]
     Indication: MULTIPLE MYELOMA
     Dosage: 40 MG, ORAL
     Route: 054
     Dates: start: 20080225, end: 20080422
  4. ADP  (PAMIDRONATE DISODIUM) [Suspect]
     Indication: DRUG USE FOR UNKNOWN INDICATION
     Dosage: 30 MG, INTRAVENOUS
     Route: 042
     Dates: start: 20080228, end: 20080423
  5. LIPITOR [Concomitant]
  6. DIFLUCAN [Concomitant]
  7. CIPROFLOXACIN [Concomitant]
  8. PLAVIX [Concomitant]
  9. PANTOPRAZOLE SODIUM [Concomitant]
  10. EMCOR (BISOPROLOL FUMARATE) [Concomitant]
  11. ERYTHROPOIETIN (ERYTHROPOETIN) [Concomitant]

REACTIONS (1)
  - HAEMORRHAGIC STROKE [None]
